FAERS Safety Report 10892762 (Version 2)
Quarter: 2015Q1

REPORT INFORMATION
  Report Type: Spontaneous
  Country: CL (occurrence: CL)
  Receive Date: 20150306
  Receipt Date: 20150320
  Transmission Date: 20150721
  Serious: Yes (Other)
  Sender: FDA-Public Use
  Company Number: CL-PFIZER INC-2015080082

PATIENT
  Age: 3 Year
  Sex: Female

DRUGS (3)
  1. HIDROCORTISONA /00028601/ [Concomitant]
     Indication: HYPOPITUITARISM
     Dosage: 3 MG, DAILY
     Dates: start: 201501
  2. GENOTROPIN [Suspect]
     Active Substance: SOMATROPIN
     Indication: HYPOPITUITARISM
     Dosage: 2.4 IU, DAILY
     Route: 058
     Dates: start: 201410, end: 201503
  3. GENOTROPIN [Suspect]
     Active Substance: SOMATROPIN
     Indication: GROWTH HORMONE DEFICIENCY
     Dosage: 1.5 IU, DAILY
     Route: 058
     Dates: start: 201503

REACTIONS (6)
  - Headache [Recovered/Resolved]
  - Hypoglycaemia [Recovered/Resolved]
  - Vomiting [Recovered/Resolved]
  - Incorrect dose administered [Recovered/Resolved]
  - Adrenocortical insufficiency acute [Recovered/Resolved]
  - Nasopharyngitis [Recovered/Resolved]

NARRATIVE: CASE EVENT DATE: 201410
